FAERS Safety Report 25719593 (Version 1)
Quarter: 2025Q3

REPORT INFORMATION
  Report Type: Spontaneous
  Country: US (occurrence: US)
  Receive Date: 20250825
  Receipt Date: 20250825
  Transmission Date: 20251021
  Serious: No
  Sender: SANOFI AVENTIS
  Company Number: US-SA-2025SA248940

PATIENT
  Age: 2 Year
  Sex: Male
  Weight: 15.42 kg

DRUGS (1)
  1. DUPIXENT [Suspect]
     Active Substance: DUPILUMAB
     Indication: Eczema infantile
     Dosage: 200 MG, Q4W
     Route: 058

REACTIONS (4)
  - Dermatitis diaper [Unknown]
  - Urticaria [Unknown]
  - Product dose omission issue [Unknown]
  - Incorrect dose administered [Unknown]
